FAERS Safety Report 8255035-8 (Version None)
Quarter: 2012Q2

REPORT INFORMATION
  Report Type: 
  Country: None (occurrence: None)
  Receive Date: 20120403
  Receipt Date: 20120322
  Transmission Date: 20120825
  Serious: Yes (Hospitalization, Other)
  Sender: FDA-Public Use
  Company Number: US-SANOFI-AVENTIS-2012SA017110

PATIENT
  Age: 74 Year
  Sex: Male
  Weight: 65.91 kg

DRUGS (22)
  1. LANTUS [Suspect]
     Indication: TYPE 2 DIABETES MELLITUS
     Dosage: DOSE:45 UNIT(S)
     Route: 058
  2. PLAVIX [Suspect]
     Route: 065
     Dates: start: 19900101
  3. METOPROLOL TARTRATE [Concomitant]
     Dates: start: 19900101
  4. OMEPRAZOLE [Concomitant]
     Dates: start: 19900101
  5. GLIPIZIDE [Concomitant]
     Dates: start: 19900101
  6. GLIPIZIDE [Concomitant]
     Dates: start: 19900101
  7. LISINOPRIL [Concomitant]
     Dates: start: 19900101
  8. OMEPRAZOLE [Concomitant]
     Dates: start: 19900101
  9. OMEPRAZOLE [Concomitant]
     Dates: start: 19900101
  10. METOPROLOL TARTRATE [Concomitant]
     Dates: start: 19900101
  11. METOPROLOL TARTRATE [Concomitant]
     Dates: start: 19900101
  12. ASPIRIN [Concomitant]
     Dates: start: 19900101
  13. LISINOPRIL [Concomitant]
     Dates: start: 19900101
  14. LISINOPRIL [Concomitant]
     Dates: start: 19900101
  15. LOVASTATIN [Concomitant]
     Dates: start: 19900101
  16. PLAVIX [Suspect]
     Route: 065
     Dates: start: 19900101
  17. PLAVIX [Suspect]
     Route: 065
     Dates: start: 19900101
  18. LOVASTATIN [Concomitant]
     Dates: start: 19900101
  19. ASPIRIN [Concomitant]
     Dates: start: 19900101
  20. ASPIRIN [Concomitant]
     Dates: start: 19900101
  21. LOVASTATIN [Concomitant]
     Dates: start: 19900101
  22. GLIPIZIDE [Concomitant]
     Dates: start: 19900101

REACTIONS (6)
  - MYOCARDIAL INFARCTION [None]
  - WOUND INFECTION [None]
  - CEREBROVASCULAR ACCIDENT [None]
  - PERIPHERAL VASCULAR DISORDER [None]
  - CAROTID ARTERY STENOSIS [None]
  - GANGRENE [None]
